FAERS Safety Report 26078878 (Version 1)
Quarter: 2025Q4

REPORT INFORMATION
  Report Type: Spontaneous
  Country: US (occurrence: US)
  Receive Date: 20251123
  Receipt Date: 20251123
  Transmission Date: 20260117
  Serious: No
  Sender: GALPHARM INTERNATIONAL
  Company Number: US-PERRIGO-25US002524

PATIENT
  Age: 29 Year
  Sex: Female
  Weight: 126.98 kg

DRUGS (2)
  1. OPILL [Suspect]
     Active Substance: NORGESTREL
     Indication: Oral contraception
     Dosage: 0.075 MG, QD
     Route: 048
     Dates: start: 202411
  2. OPILL [Suspect]
     Active Substance: NORGESTREL
     Dosage: ONE ADDITIONAL TABLET, ONCE
     Route: 048
     Dates: start: 20250221, end: 20250221

REACTIONS (1)
  - Extra dose administered [Unknown]

NARRATIVE: CASE EVENT DATE: 20250221
